FAERS Safety Report 10908751 (Version 1)
Quarter: 2015Q1

REPORT INFORMATION
  Report Type: Spontaneous
  Country: US (occurrence: None)
  Receive Date: 20150309
  Receipt Date: 20150309
  Transmission Date: 20150721
  Serious: No
  Sender: FDA-Public Use
  Company Number: None

PATIENT
  Age: 54 Year
  Sex: Female

DRUGS (9)
  1. NUVIGIL [Concomitant]
     Active Substance: ARMODAFINIL
  2. LASIX [Concomitant]
     Active Substance: FUROSEMIDE
  3. GLIPIZIDE. [Concomitant]
     Active Substance: GLIPIZIDE
  4. ZOCOR [Concomitant]
     Active Substance: SIMVASTATIN
  5. AMPYRA [Suspect]
     Active Substance: DALFAMPRIDINE
     Indication: MULTIPLE SCLEROSIS
     Route: 048
     Dates: start: 201105, end: 201307
  6. LISINOPRIL. [Concomitant]
     Active Substance: LISINOPRIL
  7. MODAFINIL. [Concomitant]
     Active Substance: MODAFINIL
  8. BACLOFEN. [Concomitant]
     Active Substance: BACLOFEN
  9. AMPYRA [Concomitant]
     Active Substance: DALFAMPRIDINE

REACTIONS (3)
  - Condition aggravated [None]
  - Abasia [None]
  - Asthenia [None]

NARRATIVE: CASE EVENT DATE: 20130812
